FAERS Safety Report 5196022-6 (Version None)
Quarter: 2006Q4

REPORT INFORMATION
  Report Type: 
  Country: None (occurrence: None)
  Receive Date: 20061227
  Receipt Date: 20061213
  Transmission Date: 20070319
  Serious: Yes (Hospitalization)
  Sender: FDA-Public Use
  Company Number: GXKR2006ES08155

PATIENT
  Age: 35 Year
  Sex: Female

DRUGS (2)
  1. RIBAVIRIN [Suspect]
     Indication: HEPATITIS C VIRUS
     Dosage: 1200 MG, QD; SEE IMAGE
     Dates: start: 20040201
  2. PPEGINTERFERON ALFA-2A (PEGINTERFERON ALFA 2-A) [Suspect]
     Indication: HEPATITIS C VIRUS
     Dosage: 180 UG, QW; SEE IMAGE
     Dates: start: 20040201

REACTIONS (10)
  - ANAEMIA [None]
  - ANTI-PLATELET ANTIBODY POSITIVE [None]
  - ANTINUCLEAR ANTIBODY POSITIVE [None]
  - HAEMOGLOBIN DECREASED [None]
  - HAEMORRHAGIC DIATHESIS [None]
  - IDIOPATHIC THROMBOCYTOPENIC PURPURA [None]
  - LEUKOPENIA [None]
  - METRORRHAGIA [None]
  - PETECHIAE [None]
  - THERAPY NON-RESPONDER [None]
